FAERS Safety Report 5661275-4 (Version None)
Quarter: 2008Q1

REPORT INFORMATION
  Report Type: 
  Country: None (occurrence: None)
  Receive Date: 20080312
  Receipt Date: 20080229
  Transmission Date: 20080703
  Serious: Yes (Hospitalization)
  Sender: FDA-Public Use
  Company Number: B0511658A

PATIENT
  Age: 58 Year
  Sex: Male

DRUGS (3)
  1. AUGMENTIN '125' [Suspect]
     Indication: BRONCHITIS
     Dosage: 1G TWICE PER DAY
     Route: 048
     Dates: start: 20071214, end: 20071219
  2. BRONCHOKOD [Suspect]
     Indication: BRONCHITIS
     Dosage: 1TBS THREE TIMES PER DAY
     Route: 048
     Dates: start: 20071212, end: 20071219
  3. SOLMUCOL [Suspect]
     Indication: BRONCHITIS
     Dosage: 200MG THREE TIMES PER DAY
     Route: 048
     Dates: start: 20071212, end: 20071219

REACTIONS (4)
  - PRURIGO [None]
  - PYREXIA [None]
  - RASH MACULO-PAPULAR [None]
  - TOXIC SKIN ERUPTION [None]
